FAERS Safety Report 12359444 (Version 2)
Quarter: 2019Q4

REPORT INFORMATION
  Report Type: Spontaneous
  Country: US (occurrence: US)
  Receive Date: 20160512
  Receipt Date: 20191216
  Transmission Date: 20200122
  Serious: No
  Sender: FDA-Public Use
  Company Number: US-UCBSA-2015014916

PATIENT
  Sex: Female

DRUGS (3)
  1. CIMZIA [Suspect]
     Active Substance: CERTOLIZUMAB PEGOL
     Indication: COLITIS ULCERATIVE
     Dosage: 400 MG, EV 4 WEEKS
     Dates: start: 201310
  2. CIMZIA [Suspect]
     Active Substance: CERTOLIZUMAB PEGOL
     Indication: OFF LABEL USE
  3. HYDROCORTISONE ENEMA [Concomitant]

REACTIONS (1)
  - No adverse event [Unknown]
